FAERS Safety Report 7397009-5 (Version None)
Quarter: 2011Q2

REPORT INFORMATION
  Report Type: 
  Country: None (occurrence: None)
  Receive Date: 20110406
  Receipt Date: 20110328
  Transmission Date: 20111010
  Serious: Yes (Hospitalization)
  Sender: FDA-Public Use
  Company Number: NZ-PURDUE-USA-2011-0065739

PATIENT
  Sex: Female

DRUGS (2)
  1. FOSAMAX [Concomitant]
     Indication: PRODUCT USED FOR UNKNOWN INDICATION
  2. NORSPAN (NDA 21-306) [Suspect]
     Indication: PAIN
     Route: 062

REACTIONS (2)
  - PANCREATITIS [None]
  - PORTAL VEIN THROMBOSIS [None]
